FAERS Safety Report 6102240-2 (Version None)
Quarter: 2009Q1

REPORT INFORMATION
  Report Type: 
  Country: None (occurrence: None)
  Receive Date: 20090304
  Receipt Date: 20090226
  Transmission Date: 20090719
  Serious: Yes (Hospitalization)
  Sender: FDA-Public Use
  Company Number: US-ASTRAZENECA-2009UW05417

PATIENT
  Age: 42 Year
  Sex: Male
  Weight: 167.8 kg

DRUGS (2)
  1. SEROQUEL [Suspect]
     Indication: ILL-DEFINED DISORDER
     Route: 048
  2. SEROQUEL [Suspect]
     Route: 048

REACTIONS (5)
  - FLUID RETENTION [None]
  - RENAL PAIN [None]
  - SURGERY [None]
  - TEMPERATURE INTOLERANCE [None]
  - WEIGHT INCREASED [None]
